FAERS Safety Report 16902197 (Version 2)
Quarter: 2020Q3

REPORT INFORMATION
  Report Type: Spontaneous
  Country: DK (occurrence: DK)
  Receive Date: 20191010
  Receipt Date: 20191113
  Transmission Date: 20201104
  Serious: Yes (Hospitalization)
  Sender: FDA-Public Use
  Company Number: DK-ROCHE-2430264

PATIENT
  Sex: Female

DRUGS (2)
  1. FINGOLIMOD. [Suspect]
     Active Substance: FINGOLIMOD
     Indication: MULTIPLE SCLEROSIS
     Route: 048
     Dates: start: 20180818, end: 20190220
  2. OCREVUS [Suspect]
     Active Substance: OCRELIZUMAB
     Indication: RELAPSING MULTIPLE SCLEROSIS
     Dosage: FREQUENCY: 2 INFUSIONS OF OCREVUS 300 MG EVERY 6 MONTHS.
     Route: 042
     Dates: start: 20190425, end: 20190508

REACTIONS (1)
  - Lung neoplasm [Not Recovered/Not Resolved]
